FAERS Safety Report 9799112 (Version 2)
Quarter: 2014Q1

REPORT INFORMATION
  Report Type: Spontaneous
  Country: US (occurrence: US)
  Receive Date: 20140106
  Receipt Date: 20140106
  Transmission Date: 20141002
  Serious: No
  Sender: FDA-Public Use
  Company Number: US-GILEAD-2010-0032390

PATIENT
  Age: 65 Year
  Sex: Female

DRUGS (24)
  1. LETAIRIS [Suspect]
     Indication: PULMONARY ARTERIAL HYPERTENSION
     Route: 048
     Dates: start: 20091008
  2. LISINOPRIL [Concomitant]
  3. COREG [Concomitant]
  4. LASIX [Concomitant]
  5. IPRATROPIUM [Concomitant]
  6. REVATIO [Concomitant]
  7. NEURONTIN [Concomitant]
  8. CELEBREX [Concomitant]
  9. LEXAPRO [Concomitant]
  10. TRAZODONE [Concomitant]
  11. PREDNISONE [Concomitant]
  12. SKELAXIN [Concomitant]
  13. LORTAB [Concomitant]
  14. COGENTIN [Concomitant]
  15. PHENERGAN [Concomitant]
  16. TOPAMAX [Concomitant]
  17. RITALIN [Concomitant]
  18. BUSPIRONE [Concomitant]
  19. FLONASE [Concomitant]
  20. SEROQUEL [Concomitant]
  21. FROVA [Concomitant]
  22. COLCHICINE [Concomitant]
  23. PROTONIX [Concomitant]
  24. FE-TINIC [Concomitant]

REACTIONS (1)
  - Dyspnoea [Unknown]
